FAERS Safety Report 19836379 (Version 1)
Quarter: 2021Q3

REPORT INFORMATION
  Report Type: Spontaneous
  Country: US (occurrence: US)
  Receive Date: 20210915
  Receipt Date: 20210915
  Transmission Date: 20211014
  Serious: No
  Sender: FDA-Public Use
  Company Number: US-BIOHAVEN PHARMACEUTICALS-2021BHV00918

PATIENT
  Age: 68 Year
  Sex: Female
  Weight: 63.49 kg

DRUGS (7)
  1. UNSPEFIIED BLOOD PRESSURE MEDICATION #3 [Concomitant]
     Dosage: UNK, 2X/DAY
  2. NURTEC ODT [Suspect]
     Active Substance: RIMEGEPANT SULFATE
     Indication: MIGRAINE
     Dosage: 75 MG, EVERY 48 HOURS (EVERY OTHER DAY)
     Route: 060
     Dates: start: 20210720
  3. UNSPECIFIED CHOLESTEROL MEDICATIONS [Concomitant]
  4. UNSPEFIIED BLOOD PRESSURE MEDICATION #1 [Concomitant]
     Dosage: UNK, 2X/DAY
  5. UNSPECIFIED THYROID MEDICATION [Concomitant]
     Active Substance: UNSPECIFIED INGREDIENT
  6. PANTOPRAZOLE [Concomitant]
     Active Substance: PANTOPRAZOLE
  7. UNSPEFIIED BLOOD PRESSURE MEDICATION #2 [Concomitant]
     Dosage: UNK, 2X/DAY

REACTIONS (3)
  - Vomiting [Not Recovered/Not Resolved]
  - Nausea [Not Recovered/Not Resolved]
  - Abdominal pain [Not Recovered/Not Resolved]

NARRATIVE: CASE EVENT DATE: 20210720
